FAERS Safety Report 9848870 (Version 1)
Quarter: 2014Q1

REPORT INFORMATION
  Report Type: Spontaneous
  Country: US (occurrence: None)
  Receive Date: 20140124
  Receipt Date: 20140124
  Transmission Date: 20141002
  Serious: Yes (Other)
  Sender: FDA-Public Use
  Company Number: None

PATIENT
  Sex: Male
  Weight: 60 kg

DRUGS (1)
  1. DEXMETHYLPHENIDATE [Suspect]
     Indication: ATTENTION DEFICIT/HYPERACTIVITY DISORDER
     Dosage: DAILY (AM)
     Route: 048
     Dates: start: 20131215, end: 20140109

REACTIONS (6)
  - Abnormal behaviour [None]
  - Anger [None]
  - Decreased appetite [None]
  - Product substitution issue [None]
  - Impulsive behaviour [None]
  - Educational problem [None]
